FAERS Safety Report 4465847-4 (Version None)
Quarter: 2004Q3

REPORT INFORMATION
  Report Type: 
  Country: None (occurrence: None)
  Receive Date: 20040929
  Receipt Date: 20040929
  Transmission Date: 20050211
  Serious: Yes (Life-Threatening, Hospitalization)
  Sender: FDA-Public Use
  Company Number: None

PATIENT
  Age: 59 Year
  Sex: Female
  Weight: 55.7924 kg

DRUGS (4)
  1. IMITREX [Suspect]
     Indication: MIGRAINE
     Dosage: AS NEEDED
     Dates: start: 19960101, end: 20040501
  2. PREVACID [Concomitant]
  3. AMITRIPTYLINE HCL [Concomitant]
  4. LISINOPRIL [Concomitant]

REACTIONS (1)
  - MYOCARDIAL INFARCTION [None]
